FAERS Safety Report 7354985-4 (Version None)
Quarter: 2011Q1

REPORT INFORMATION
  Report Type: 
  Country: None (occurrence: None)
  Receive Date: 20110316
  Receipt Date: 20110308
  Transmission Date: 20110831
  Serious: Yes (Hospitalization)
  Sender: FDA-Public Use
  Company Number: DE-PFIZER INC-2011051270

PATIENT
  Age: 67 Year
  Sex: Male
  Weight: 114 kg

DRUGS (11)
  1. BEVACIZUMAB [Suspect]
     Indication: COLORECTAL CANCER METASTATIC
     Dosage: 597 MG, EVERY 2 WEEKS
     Route: 042
     Dates: start: 20100929
  2. ASPIRIN [Concomitant]
     Dosage: 100 MG, 1X/DAY
     Route: 048
  3. METOPROLOL [Concomitant]
     Dosage: 50 MG, 1X/DAY
     Route: 048
  4. RAMIPRIL [Concomitant]
     Dosage: 5 MG, 1X/DAY
     Route: 048
  5. METFORMIN [Concomitant]
     Dosage: 850 MG, 1X/DAY
     Route: 048
  6. FOLINIC ACID [Suspect]
     Indication: COLORECTAL CANCER METASTATIC
     Dosage: 1000 MG, EVERY 2 WEEKS
     Route: 042
     Dates: start: 20100929
  7. EMBOLEX [Concomitant]
     Dosage: 1.6 ML, 1X/DAY
     Route: 058
     Dates: start: 20081101
  8. SIMVASTATIN [Concomitant]
     Dosage: 40 MG, 1X/DAY
     Route: 048
  9. IRINOTECAN HCL [Suspect]
     Indication: COLORECTAL CANCER METASTATIC
     Dosage: 436 MG, EVERY 2 WEEKS
     Route: 042
     Dates: start: 20100929, end: 20110211
  10. FLUOROURACIL [Suspect]
     Indication: COLORECTAL CANCER METASTATIC
     Dosage: 6776 MG, EVERY 2 WEEKS
     Route: 042
     Dates: start: 20100929
  11. TORASEMIDE [Concomitant]
     Dosage: 20 MG, 1X/DAY

REACTIONS (1)
  - CATHETER SITE INFECTION [None]
